FAERS Safety Report 23339297 (Version 1)
Quarter: 2023Q4

REPORT INFORMATION
  Report Type: Spontaneous
  Country: PT (occurrence: PT)
  Receive Date: 20231226
  Receipt Date: 20231226
  Transmission Date: 20240110
  Serious: Yes (Other)
  Sender: FDA-Public Use
  Company Number: PT-CHEPLA-2023015907

PATIENT
  Age: 81 Year
  Sex: Male

DRUGS (5)
  1. PANCREATIN [Suspect]
     Active Substance: PANCRELIPASE
     Indication: Pancreatic cyst
     Route: 048
  2. ESOMEPRAZOLE [Concomitant]
     Active Substance: ESOMEPRAZOLE
     Indication: Pancreatic cyst
     Route: 065
  3. BETAHISTINE [Concomitant]
     Active Substance: BETAHISTINE
     Indication: Pancreatic cyst
     Route: 065
  4. TRAZODONE [Concomitant]
     Active Substance: TRAZODONE HYDROCHLORIDE
     Indication: Pancreatic cyst
     Route: 065
  5. MIDAZOLAM [Concomitant]
     Active Substance: MIDAZOLAM
     Indication: Pancreatic cyst
     Route: 065

REACTIONS (2)
  - Drug dependence [Unknown]
  - Treatment noncompliance [Unknown]
